FAERS Safety Report 8927324 (Version 1)
Quarter: 2012Q4

REPORT INFORMATION
  Report Type: 
  Country: US (occurrence: US)
  Receive Date: 20121127
  Receipt Date: 20121127
  Transmission Date: 20130627
  Serious: Yes (Other)
  Sender: FDA-Public Use
  Company Number: US-PFIZER INC-2012285854

PATIENT
  Sex: Female

DRUGS (2)
  1. DRISTAN NASAL MIST LONG LASTING [Suspect]
     Indication: SINUSITIS
     Dosage: UNK
     Route: 045
     Dates: start: 201210, end: 201210
  2. DRISTAN NASAL MIST LONG LASTING [Suspect]
     Indication: ALLERGY

REACTIONS (2)
  - Haemoptysis [Unknown]
  - Nasal discomfort [Unknown]
